FAERS Safety Report 7201409-3 (Version None)
Quarter: 2010Q4

REPORT INFORMATION
  Report Type: 
  Country: None (occurrence: None)
  Receive Date: 20101215
  Receipt Date: 20101207
  Transmission Date: 20110411
  Serious: Yes (Hospitalization, Disabling, Other)
  Sender: FDA-Public Use
  Company Number: 2010SP010131

PATIENT
  Age: 25 Year
  Sex: Female
  Weight: 81.6475 kg

DRUGS (1)
  1. NUVARING [Suspect]
     Indication: CONTRACEPTION
     Dosage: QM
     Dates: start: 20080208, end: 20080221

REACTIONS (13)
  - ABDOMINAL PAIN [None]
  - ANXIETY [None]
  - BRONCHITIS [None]
  - DEEP VEIN THROMBOSIS [None]
  - DEPRESSION [None]
  - GASTROINTESTINAL DISORDER [None]
  - HAEMORRHOIDS [None]
  - MUSCULOSKELETAL CHEST PAIN [None]
  - MYALGIA [None]
  - PAIN [None]
  - PHARYNGITIS [None]
  - PULMONARY EMBOLISM [None]
  - VIRAL INFECTION [None]
